FAERS Safety Report 5448802-7 (Version None)
Quarter: 2007Q3

REPORT INFORMATION
  Report Type: 
  Country: None (occurrence: None)
  Receive Date: 20070911
  Receipt Date: 20070620
  Transmission Date: 20080115
  Serious: No
  Sender: FDA-Public Use
  Company Number: US-BRISTOL-MYERS SQUIBB COMPANY-13820287

PATIENT
  Age: 52 Year
  Sex: Female
  Weight: 52 kg

DRUGS (5)
  1. EMSAM [Suspect]
     Indication: MAJOR DEPRESSION
     Route: 062
     Dates: start: 20070507
  2. LAMICTAL [Concomitant]
  3. ACTONEL [Concomitant]
  4. SEROQUEL [Concomitant]
  5. ZYRTEC [Concomitant]

REACTIONS (2)
  - APPLICATION SITE ERYTHEMA [None]
  - DRUG INEFFECTIVE [None]
